FAERS Safety Report 10626241 (Version 1)
Quarter: 2014Q4

REPORT INFORMATION
  Report Type: Spontaneous
  Country: PT (occurrence: PT)
  Receive Date: 20141204
  Receipt Date: 20141204
  Transmission Date: 20150529
  Serious: Yes (Other)
  Sender: FDA-Public Use
  Company Number: PT-ACTAVIS-2014-25894

PATIENT
  Age: 46 Year
  Sex: Female
  Weight: 71 kg

DRUGS (4)
  1. DOCETAXEL ACTAVIS [Suspect]
     Active Substance: DOCETAXEL
     Indication: BREAST CANCER
     Dosage: 180 MG, DAILY
     Route: 042
     Dates: start: 20140804, end: 20140804
  2. DEXAMETASONA                       /00016001/ [Concomitant]
     Indication: PREMEDICATION
     Dosage: 8 MG, DAILY
     Route: 042
     Dates: start: 20140804, end: 20140804
  3. SODIUM CHLORIDE. [Suspect]
     Active Substance: SODIUM CHLORIDE
     Indication: PRODUCT USED FOR UNKNOWN INDICATION
     Dosage: 250 ML, DAILY; SODIUM CHLORIDE 0.9% VIAFLO BAXTER; USED FOR DILUTION OF DOCETAXEL
     Route: 042
     Dates: start: 20140804, end: 20140804
  4. PREDNISOLONA                       /00016201/ [Concomitant]
     Indication: PREMEDICATION
     Dosage: 50 MG, BID
     Route: 048
     Dates: start: 20140803, end: 20140804

REACTIONS (2)
  - Erythema [Recovered/Resolved]
  - Dyspnoea [Recovered/Resolved]

NARRATIVE: CASE EVENT DATE: 20140804
